FAERS Safety Report 10468235 (Version 2)
Quarter: 2015Q3

REPORT INFORMATION
  Report Type: Spontaneous
  Country: US (occurrence: US)
  Receive Date: 20140922
  Receipt Date: 20150818
  Transmission Date: 20151125
  Serious: No
  Sender: FDA-Public Use
  Company Number: US-GILEAD-2014-0115714

PATIENT
  Age: 41 Year
  Sex: Female

DRUGS (10)
  1. LETAIRIS [Suspect]
     Active Substance: AMBRISENTAN
     Indication: PULMONARY HYPERTENSION
     Dosage: 10 MG, QD
     Route: 065
     Dates: start: 20110502
  2. GABAPENTIN. [Concomitant]
     Active Substance: GABAPENTIN
  3. TOPAMAX [Concomitant]
     Active Substance: TOPIRAMATE
  4. FUROSEMIDE. [Concomitant]
     Active Substance: FUROSEMIDE
  5. DIFLUCAN [Concomitant]
     Active Substance: FLUCONAZOLE
  6. ZOFRAN [Concomitant]
     Active Substance: ONDANSETRON HYDROCHLORIDE
  7. ORENITRAM [Suspect]
     Active Substance: TREPROSTINIL
  8. DIGOXIN. [Concomitant]
     Active Substance: DIGOXIN
  9. PROCHLORPERAZINE. [Concomitant]
     Active Substance: PROCHLORPERAZINE
  10. XARELTO [Concomitant]
     Active Substance: RIVAROXABAN

REACTIONS (2)
  - Vomiting [Unknown]
  - Diarrhoea [Unknown]
